FAERS Safety Report 9798695 (Version 1)
Quarter: 2014Q1

REPORT INFORMATION
  Report Type: Spontaneous
  Country: US (occurrence: KE)
  Receive Date: 20140106
  Receipt Date: 20140106
  Transmission Date: 20141002
  Serious: Yes (Death, Other)
  Sender: FDA-Public Use
  Company Number: PHHY2013KE153400

PATIENT
  Age: 24 Year
  Sex: Female

DRUGS (10)
  1. RIFAMPICIN [Suspect]
     Indication: TUBERCULOSIS
     Dosage: 450 MG/DAY
  2. WARFARIN [Interacting]
     Indication: RHEUMATIC HEART DISEASE
     Dosage: 5 MG/DAY
     Route: 048
  3. WARFARIN [Interacting]
     Indication: ATRIAL THROMBOSIS
     Dosage: 5.8 MG/DAY
     Route: 048
  4. FUROSEMIDE [Interacting]
  5. ISONIAZID [Concomitant]
     Indication: TUBERCULOSIS
  6. PYRAZINAMIDE [Concomitant]
     Indication: TUBERCULOSIS
  7. ETHAMBUTOL [Concomitant]
     Indication: TUBERCULOSIS
  8. ENALAPRIL [Concomitant]
  9. CARVEDILOL [Concomitant]
  10. DIGOXIN [Concomitant]

REACTIONS (3)
  - Death [Fatal]
  - Overdose [Unknown]
  - Drug interaction [Unknown]
